FAERS Safety Report 14521345 (Version 1)
Quarter: 2018Q1

REPORT INFORMATION
  Report Type: Spontaneous
  Country: US (occurrence: US)
  Receive Date: 20180212
  Receipt Date: 20180212
  Transmission Date: 20180509
  Serious: No
  Sender: FDA-Public Use
  Company Number: US-RISING PHARMACEUTICALS, INC.-2017RIS00287

PATIENT
  Sex: Male
  Weight: 97.51 kg

DRUGS (5)
  1. MAGNESIUM [Concomitant]
     Active Substance: MAGNESIUM
  2. ELIQUIS [Concomitant]
     Active Substance: APIXABAN
  3. MULTI VITAMINS [Concomitant]
     Active Substance: VITAMINS
  4. DICLOFENAC [Suspect]
     Active Substance: DICLOFENAC
     Indication: RETINAL DETACHMENT
     Dosage: 1 GTT, 2X/DAY
     Route: 047
     Dates: start: 201708, end: 2017
  5. CALCIUM [Concomitant]
     Active Substance: CALCIUM

REACTIONS (9)
  - Gait disturbance [Recovering/Resolving]
  - Corneal abrasion [Recovering/Resolving]
  - Vision blurred [Recovering/Resolving]
  - Ocular hyperaemia [Recovering/Resolving]
  - Retinal disorder [None]
  - Intraocular pressure increased [Unknown]
  - Corneal disorder [Unknown]
  - Pain [Recovering/Resolving]
  - Product substitution issue [Unknown]

NARRATIVE: CASE EVENT DATE: 2017
